FAERS Safety Report 10844596 (Version 1)
Quarter: 2015Q1

REPORT INFORMATION
  Report Type: Report from Study
  Country: US (occurrence: US)
  Receive Date: 20150220
  Receipt Date: 20150220
  Transmission Date: 20150721
  Serious: No
  Sender: FDA-Public Use
  Company Number: US-ABBVIE-14P-163-1291620-00

PATIENT
  Age: 19 Year
  Sex: Female

DRUGS (3)
  1. LIALDA [Concomitant]
     Active Substance: MESALAMINE
     Indication: COLITIS ULCERATIVE
  2. HUMIRA [Suspect]
     Active Substance: ADALIMUMAB
     Indication: COLITIS ULCERATIVE
     Route: 065
     Dates: start: 20140619
  3. IMURAN [Concomitant]
     Active Substance: AZATHIOPRINE
     Indication: COLITIS ULCERATIVE

REACTIONS (4)
  - Visual impairment [Not Recovered/Not Resolved]
  - Abdominal pain upper [Recovered/Resolved]
  - Pruritus generalised [Not Recovered/Not Resolved]
  - Eye swelling [Recovering/Resolving]

NARRATIVE: CASE EVENT DATE: 20140914
